FAERS Safety Report 22367172 (Version 1)
Quarter: 2023Q2

REPORT INFORMATION
  Report Type: Report from Study
  Country: US (occurrence: US)
  Receive Date: 20230525
  Receipt Date: 20230525
  Transmission Date: 20230722
  Serious: Yes (Death)
  Sender: FDA-Public Use
  Company Number: US-BAYER-2023A069559

PATIENT
  Age: 56 Year
  Sex: Female
  Weight: 102.04 kg

DRUGS (2)
  1. ADEMPAS [Suspect]
     Active Substance: RIOCIGUAT
     Indication: Pulmonary arterial hypertension
     Dosage: 1 MG, TID
     Route: 048
     Dates: start: 20230224
  2. OPSUMIT [Concomitant]
     Active Substance: MACITENTAN
     Dosage: UNK (LAST SHIPPED 2/16/23)

REACTIONS (1)
  - Death [Fatal]
